FAERS Safety Report 4531106-4 (Version None)
Quarter: 2004Q4

REPORT INFORMATION
  Report Type: 
  Country: None (occurrence: None)
  Receive Date: 20041130
  Receipt Date: 20040830
  Transmission Date: 20050328
  Serious: Yes (Disabling)
  Sender: FDA-Public Use
  Company Number: WAES 0211USA01010

PATIENT
  Age: 53 Year
  Sex: Female
  Weight: 68.0396 kg

DRUGS (4)
  1. FOSAMAX [Suspect]
     Dosage: 10 MG/DAILY/PO
     Route: 048
  2. BEXTRA [Concomitant]
  3. GLUCOPHAGE [Concomitant]
  4. LOPRESSOR [Concomitant]

REACTIONS (2)
  - ARTHRALGIA [None]
  - PAIN IN EXTREMITY [None]
